FAERS Safety Report 5598823-9 (Version None)
Quarter: 2008Q1

REPORT INFORMATION
  Report Type: 
  Country: None (occurrence: None)
  Receive Date: 20080122
  Receipt Date: 20080114
  Transmission Date: 20080703
  Serious: Yes (Life-Threatening, Hospitalization, Other)
  Sender: FDA-Public Use
  Company Number: US-ELI_LILLY_AND_COMPANY-US200801002519

PATIENT
  Sex: Female

DRUGS (35)
  1. FORTEO [Suspect]
     Indication: OSTEOPOROSIS
     Dosage: UNK, UNK
     Dates: start: 20060401
  2. CELLCEPT [Concomitant]
     Dosage: 500 MG, 4/D
  3. ACIPHEX [Concomitant]
     Dosage: 20 MG, ONE TO TWO TIMES DAILY
  4. ALPHAGAN [Concomitant]
     Indication: GLAUCOMA
     Dosage: 0.2 %, 2/D MORNING AND NIGHT
  5. BUSPAR [Concomitant]
     Dosage: 15 MG, 2/D
  6. BUSPAR [Concomitant]
     Dosage: 0.25 MG, AS NEEDED
  7. CARAFATE [Concomitant]
     Dosage: 1 G, 3/D
  8. DUONEB [Concomitant]
     Indication: DYSPNOEA
     Dosage: 0.5 TO 3 MG
  9. FERROUS SULFATE TAB [Concomitant]
     Dosage: 325 MG, 2/D
  10. GLUCOPHAGE [Concomitant]
     Indication: DIABETES MELLITUS
     Dosage: 1000 TWICE A DAY
  11. IBUPROFEN [Concomitant]
     Dosage: UNK, AS NEEDED
  12. LANTUS [Concomitant]
     Dosage: 20 U, EACH MORNING
  13. LASIX [Concomitant]
     Dosage: 40 MG, AS NEEDED
  14. LEVSIN [Concomitant]
     Dosage: 0.375 MG, UNK
  15. MAGNESIUM OXIDE [Concomitant]
     Dosage: 400 MG, 2/D
  16. NITROGLYCERIN [Concomitant]
     Indication: ANGINA PECTORIS
     Dosage: 0.4 AS NEEDED BECAUSE SHE GOES INTO ANGINA, WHICH IS PRETTY MUCH GONE IN A FEW MINUTES
  17. NOVOLIN R [Concomitant]
     Dosage: UNK, AS NEEDED
  18. NYSTATIN [Concomitant]
     Indication: CANDIDIASIS
  19. PHENERGAN HCL [Concomitant]
     Indication: NAUSEA
     Dosage: 25 MG, AS NEEDED
  20. POTASSIUM CHLORIDE [Concomitant]
     Dosage: 20 MEQ, ONE-HALF TABLET TWICE A DAY
  21. PREDNISONE [Concomitant]
     Dosage: 35 MG, UNK
  22. PRINIVIL [Concomitant]
     Indication: BLOOD PRESSURE
     Dosage: 20 MG, ONE A DAY EACH MORNING
  23. TOPROL-XL [Concomitant]
     Dosage: 100 MG, 2/D
  24. VICODIN [Concomitant]
     Dosage: 500 MG, AS NEEDED
     Dates: end: 20070101
  25. XALATAN [Concomitant]
     Indication: GLAUCOMA
     Dosage: 2.5 ML, EACH EVENING
  26. ZOLOFT [Concomitant]
     Dosage: 200 MG, EACH MORNING
  27. ZYRTEC [Concomitant]
     Dosage: 10 MG, DAILY (1/D)
  28. VITAMIN D [Concomitant]
     Dosage: HIGH VITAMIN D
  29. MULTI-VITAMIN [Concomitant]
  30. CALCIUM AND ERGOCALCIFEROL [Concomitant]
     Dosage: 1200 MG, 4/D
  31. ZINC [Concomitant]
  32. NIACIN [Concomitant]
  33. FOLIC ACID [Concomitant]
  34. VITAMIN B COMPLEX CAP [Concomitant]
  35. OXYGEN [Concomitant]
     Dosage: SET TO NUMBER 2 ON THE MACHINE

REACTIONS (14)
  - ANAEMIA [None]
  - BLOOD MAGNESIUM ABNORMAL [None]
  - BLOOD POTASSIUM ABNORMAL [None]
  - CARDIAC DISORDER [None]
  - DIABETES MELLITUS [None]
  - DYSPNOEA [None]
  - GLAUCOMA [None]
  - HAEMORRHAGE [None]
  - LUNG DISORDER [None]
  - MULTIPLE FRACTURES [None]
  - PERICARDITIS [None]
  - PLEURISY [None]
  - SLEEP APNOEA SYNDROME [None]
  - SYSTEMIC LUPUS ERYTHEMATOSUS [None]
